FAERS Safety Report 18481426 (Version 1)
Quarter: 2020Q4

REPORT INFORMATION
  Report Type: Report from Study
  Country: FI (occurrence: FI)
  Receive Date: 20201109
  Receipt Date: 20201109
  Transmission Date: 20210114
  Serious: Yes (Other)
  Sender: FDA-Public Use
  Company Number: FI-MYLANLABS-2020M1046256

PATIENT
  Age: 31 Year
  Sex: Male

DRUGS (7)
  1. LEPONEX [Suspect]
     Active Substance: CLOZAPINE
     Dosage: INCREASED UPTO 125 MG PER DAY
     Dates: end: 2019
  2. LEPONEX [Suspect]
     Active Substance: CLOZAPINE
     Dosage: UNK
     Dates: start: 20200505, end: 2020
  3. LEPONEX [Suspect]
     Active Substance: CLOZAPINE
     Dosage: UNK
     Dates: start: 20200611, end: 202006
  4. LEPONEX [Suspect]
     Active Substance: CLOZAPINE
     Dosage: SMALL DOSE TITRATED
     Dates: start: 20200713, end: 2020
  5. LEPONEX [Suspect]
     Active Substance: CLOZAPINE
     Dosage: UNK
     Dates: start: 20200622, end: 2020
  6. LEPONEX [Suspect]
     Active Substance: CLOZAPINE
     Dosage: 500 MILLIGRAM, QD
     Dates: start: 2020
  7. LEPONEX [Suspect]
     Active Substance: CLOZAPINE
     Indication: PRODUCT USED FOR UNKNOWN INDICATION
     Dosage: UNK
     Dates: start: 201910

REACTIONS (7)
  - Pulmonary embolism [Unknown]
  - Eosinophilia [Recovered/Resolved]
  - C-reactive protein increased [Recovered/Resolved]
  - Leukocytosis [Recovered/Resolved]
  - Pyrexia [Recovered/Resolved]
  - Inflammation [Unknown]
  - Troponin I increased [Recovered/Resolved]

NARRATIVE: CASE EVENT DATE: 2019
